FAERS Safety Report 9293537 (Version 1)
Quarter: 2013Q2

REPORT INFORMATION
  Report Type: Spontaneous
  Country: FR (occurrence: FR)
  Receive Date: 20130516
  Receipt Date: 20130516
  Transmission Date: 20140414
  Serious: Yes (Death, Hospitalization)
  Sender: FDA-Public Use
  Company Number: FR-GLAXOSMITHKLINE-B0889765A

PATIENT
  Age: 83 Year
  Sex: Female

DRUGS (3)
  1. ARIXTRA [Suspect]
     Indication: PRODUCT USED FOR UNKNOWN INDICATION
     Dosage: 2.5MG PER DAY
     Route: 058
     Dates: start: 20130423, end: 20130423
  2. LOVENOX [Suspect]
     Indication: PRODUCT USED FOR UNKNOWN INDICATION
     Dosage: 4000IU PER DAY
     Route: 058
     Dates: start: 20130412, end: 20130418
  3. ORGARAN [Suspect]
     Indication: HEPARIN-INDUCED THROMBOCYTOPENIA
     Dosage: 750IU PER DAY
     Route: 058
     Dates: start: 20130419, end: 20130422

REACTIONS (1)
  - Death [Fatal]
